FAERS Safety Report 16095615 (Version 1)
Quarter: 2019Q1

REPORT INFORMATION
  Report Type: Report from Study
  Country: CA (occurrence: CA)
  Receive Date: 20190320
  Receipt Date: 20190320
  Transmission Date: 20190418
  Serious: Yes (Other)
  Sender: FDA-Public Use
  Company Number: CA-NALPROPION PHARMACEUTICALS INC.-2019-006806

PATIENT

DRUGS (4)
  1. CONTRAVE [Suspect]
     Active Substance: BUPROPION HYDROCHLORIDE\NALTREXONE HYDROCHLORIDE
     Dosage: ONE TABLET IN MORNING AND ONE TABLET AT NIGHT (1 DOSAGE FORMS,2 IN 1 D)
     Route: 048
     Dates: start: 20190128, end: 20190203
  2. CONTRAVE [Suspect]
     Active Substance: BUPROPION HYDROCHLORIDE\NALTREXONE HYDROCHLORIDE
     Dosage: TWO TABLETS IN MORNING AND ONE TABLET AT NIGHT (2 IN 1 D)
     Route: 048
     Dates: start: 20190204, end: 20190210
  3. CONTRAVE [Suspect]
     Active Substance: BUPROPION HYDROCHLORIDE\NALTREXONE HYDROCHLORIDE
     Dosage: TWO TABLETS IN MORNING AND TWO TABLETS AT NIGHT (2 DOSAGE FORMS,2 IN 1 D)
     Route: 048
     Dates: start: 20190211, end: 20190227
  4. CONTRAVE [Suspect]
     Active Substance: BUPROPION HYDROCHLORIDE\NALTREXONE HYDROCHLORIDE
     Indication: WEIGHT CONTROL
     Dosage: ONE TABLET IN MORNING (1 DOSAGE FORMS,1 IN 1 D)
     Route: 048
     Dates: start: 20190121, end: 20190127

REACTIONS (2)
  - Concussion [Unknown]
  - Fall [Unknown]
